FAERS Safety Report 7733216 (Version 4)
Quarter: 2014Q1

REPORT INFORMATION
  Report Type: Spontaneous
  Country: US (occurrence: US)
  Receive Date: 20101223
  Receipt Date: 20140116
  Transmission Date: 20141002
  Serious: Yes (Other)
  Sender: FDA-Public Use
  Company Number: US-BAYER-2010-006492

PATIENT
  Age: 39 Year
  Sex: Female
  Weight: 74.83 kg

DRUGS (4)
  1. YAZ [Suspect]
     Dosage: UNK
     Dates: start: 2006, end: 2009
  2. PROTONIX [Concomitant]
     Dosage: 40 MG, QD
     Route: 048
  3. PEPCID [Concomitant]
  4. PERCOCET [Concomitant]
     Dosage: 5/325 PO Q

REACTIONS (6)
  - Gallbladder non-functioning [None]
  - Biliary dyskinesia [None]
  - Pain [None]
  - Anxiety [None]
  - Injury [None]
  - Abdominal pain [None]
